FAERS Safety Report 5187904-X (Version None)
Quarter: 2006Q4

REPORT INFORMATION
  Report Type: 
  Country: None (occurrence: None)
  Receive Date: 20061221
  Receipt Date: 20061215
  Transmission Date: 20070319
  Serious: Yes (Life-Threatening, Other)
  Sender: FDA-Public Use
  Company Number: PHFR2006GB03679

PATIENT
  Age: 46 Year
  Sex: Female

DRUGS (16)
  1. CO-DYDRAMOL [Concomitant]
  2. ESCITALOPRAM OXALATE [Concomitant]
  3. NORETHINDRONE ACETATE [Concomitant]
  4. AMOXICILLIN [Suspect]
     Indication: PROPHYLAXIS
     Dosage: 1G ONCE
  5. EPHEDRINE [Suspect]
     Dosage: 6MG ONCE
  6. FENTANYL [Suspect]
     Indication: ANAESTHESIA
  7. GLYCOPYRROLATE [Suspect]
     Indication: ANAESTHESIA REVERSAL
  8. ISOFLURANE [Suspect]
     Indication: ANAESTHESIA
  9. MORPHINE [Suspect]
     Indication: ANAESTHESIA
  10. NEOSTIGMINE [Suspect]
     Indication: ANAESTHESIA REVERSAL
  11. NITROUS OXIDE W/ OXYGEN [Suspect]
     Indication: ANAESTHESIA
  12. ONDANSETRON HCL [Suspect]
     Dosage: 4MG ONCE
  13. PROPOFOL [Suspect]
     Indication: ANAESTHESIA
  14. VECURONIUM BROMIDE [Suspect]
     Indication: ANAESTHESIA
  15. DIAZEPAM [Concomitant]
  16. DICLOFENAC SODIUM [Suspect]
     Dosage: 75MG ONCE
     Route: 042

REACTIONS (18)
  - ABDOMINAL DISTENSION [None]
  - ACTIVATED PARTIAL THROMBOPLASTIN TIME PROLONGED [None]
  - ALANINE AMINOTRANSFERASE INCREASED [None]
  - ASPARTATE AMINOTRANSFERASE INCREASED [None]
  - BLOOD ALKALINE PHOSPHATASE INCREASED [None]
  - BLOOD BILIRUBIN INCREASED [None]
  - BLOOD LACTIC ACID INCREASED [None]
  - CHEST EXPANSION DECREASED [None]
  - GAMMA-GLUTAMYLTRANSFERASE INCREASED [None]
  - HEPATIC FAILURE [None]
  - HEPATOMEGALY [None]
  - HYPOTENSION [None]
  - OXYGEN SATURATION DECREASED [None]
  - SOMNOLENCE [None]
  - STRIDOR [None]
  - TACHYCARDIA [None]
  - TACHYPNOEA [None]
  - ULTRASOUND SCAN ABNORMAL [None]
